FAERS Safety Report 9797776 (Version 1)
Quarter: 2014Q1

REPORT INFORMATION
  Report Type: Spontaneous
  Country: US (occurrence: US)
  Receive Date: 20140106
  Receipt Date: 20140106
  Transmission Date: 20141002
  Serious: Yes (Life-Threatening, Other)
  Sender: FDA-Public Use
  Company Number: US-JNJFOC-20131217106

PATIENT
  Age: 75 Year
  Sex: Female

DRUGS (2)
  1. CLADRIBINE [Suspect]
     Indication: HAIRY CELL LEUKAEMIA
     Dosage: 2-HOUR INTRAVENOUS INFUSION
     Route: 042
  2. RITUXIMAB [Suspect]
     Indication: HAIRY CELL LEUKAEMIA
     Route: 065

REACTIONS (20)
  - Neutropenia [Unknown]
  - Platelet disorder [Unknown]
  - Hyperuricaemia [Unknown]
  - Leukopenia [Unknown]
  - Tumour lysis syndrome [Unknown]
  - Lymphopenia [Unknown]
  - Chills [Unknown]
  - Pyrexia [Unknown]
  - Dyspnoea [Unknown]
  - Nausea [Unknown]
  - Cough [Unknown]
  - Hypoalbuminaemia [Unknown]
  - Arthralgia [Unknown]
  - Aspartate aminotransferase abnormal [Unknown]
  - Bronchospasm [Unknown]
  - Vomiting [Unknown]
  - Hypotension [Unknown]
  - Back pain [Unknown]
  - Systolic hypertension [Unknown]
  - Incorrect dose administered [Unknown]
